FAERS Safety Report 5925423-0 (Version None)
Quarter: 2008Q3

REPORT INFORMATION
  Report Type: 
  Country: None (occurrence: None)
  Receive Date: 20080909
  Receipt Date: 20080229
  Transmission Date: 20090109
  Serious: Yes (Hospitalization)
  Sender: FDA-Public Use
  Company Number: 163-20785-08030123

PATIENT
  Age: 84 Year
  Sex: Male
  Weight: 58.9676 kg

DRUGS (1)
  1. THALOMID [Suspect]
     Indication: MULTIPLE MYELOMA
     Dosage: 200 MG, HS, ORAL
     Route: 048
     Dates: start: 20080228

REACTIONS (1)
  - ATRIAL FIBRILLATION [None]
